FAERS Safety Report 10171073 (Version 2)
Quarter: 2014Q2

REPORT INFORMATION
  Report Type: Spontaneous
  Country: US (occurrence: None)
  Receive Date: 20140512
  Receipt Date: 20140516
  Transmission Date: 20141212
  Serious: Yes (Other)
  Sender: FDA-Public Use
  Company Number: 20140242

PATIENT
  Sex: Female

DRUGS (2)
  1. DEXAMETHASONE SODIUM PHOSPHATE INJECTION, USP (4901-25) 4 MG/ML [Suspect]
     Indication: PLASMACYTOMA
  2. DEXAMETHASONE SODIUM PHOSPHATE INJECTION, USP (4901-25) 4 MG/ML [Suspect]
     Indication: NEOPLASM RECURRENCE

REACTIONS (6)
  - Myopathy [None]
  - Psychotic disorder [None]
  - Chest pain [None]
  - Myocardial infarction [None]
  - Arrhythmia [None]
  - Pulmonary embolism [None]
